FAERS Safety Report 8166668-1 (Version None)
Quarter: 2012Q1

REPORT INFORMATION
  Report Type: 
  Country: None (occurrence: None)
  Receive Date: 20120227
  Receipt Date: 20120216
  Transmission Date: 20120608
  Serious: Yes (Hospitalization)
  Sender: FDA-Public Use
  Company Number: US-CELGENEUS-163-21880-12021991

PATIENT
  Sex: Female

DRUGS (17)
  1. HUMALOG [Concomitant]
     Route: 065
  2. FUROSEMIDE [Concomitant]
     Route: 065
  3. DEXAMETHASONE [Concomitant]
     Route: 065
  4. VICODIN [Concomitant]
     Route: 065
  5. REVLIMID [Suspect]
     Dosage: 1.4286 MILLIGRAM
     Route: 048
     Dates: start: 20120201
  6. VITAMIN E [Concomitant]
     Route: 065
  7. CARVEDILOL [Concomitant]
     Route: 065
  8. VYTORIN [Concomitant]
     Route: 065
  9. GABAPENTIN [Concomitant]
     Route: 065
  10. TERAZOSIN HCL [Concomitant]
     Route: 065
  11. REVLIMID [Suspect]
     Indication: MULTIPLE MYELOMA
     Dosage: 2.5 MILLIGRAM
     Route: 048
     Dates: start: 20110908
  12. ALLOPURINOL [Concomitant]
     Route: 065
  13. ASPIRIN [Concomitant]
     Route: 065
  14. DIOVAN [Concomitant]
     Route: 065
  15. FENOFIBRATE [Concomitant]
     Route: 065
  16. VITAMIN D [Concomitant]
     Route: 065
  17. CARTIA XT [Concomitant]
     Route: 065

REACTIONS (2)
  - FLUID RETENTION [None]
  - ATRIAL FIBRILLATION [None]
